FAERS Safety Report 7426898-0 (Version None)
Quarter: 2011Q2

REPORT INFORMATION
  Report Type: 
  Country: None (occurrence: None)
  Receive Date: 20110415
  Receipt Date: 20110415
  Transmission Date: 20111010
  Serious: Yes (Other)
  Sender: FDA-Public Use
  Company Number: None

PATIENT
  Sex: Male
  Weight: 104.3273 kg

DRUGS (6)
  1. VENLAFAXINE HCL EXTENDED-RELEASE [Suspect]
     Dosage: 75MG CAP 3 A DAY PO
     Route: 048
     Dates: start: 20110302, end: 20110325
  2. BYSTOLIC [Concomitant]
  3. FLEXERIL [Concomitant]
  4. DIOVAN HCT [Concomitant]
  5. CELEBREX [Concomitant]
  6. DARVOCET [Concomitant]

REACTIONS (5)
  - ANGER [None]
  - FEELING ABNORMAL [None]
  - PRODUCT SUBSTITUTION ISSUE [None]
  - MOOD ALTERED [None]
  - ANXIETY [None]
